FAERS Safety Report 10419252 (Version 1)
Quarter: 2014Q3

REPORT INFORMATION
  Report Type: Spontaneous
  Country: BR (occurrence: BR)
  Receive Date: 20140829
  Receipt Date: 20140829
  Transmission Date: 20150326
  Serious: Yes (Hospitalization, Other)
  Sender: FDA-Public Use
  Company Number: BR-PFIZER INC-2014235514

PATIENT
  Age: 53 Year
  Sex: Male
  Weight: 80 kg

DRUGS (3)
  1. LIPITOR [Suspect]
     Active Substance: ATORVASTATIN CALCIUM
     Dosage: 40 MG, (ONE TABLET) DAILY
     Route: 048
     Dates: start: 201112
  2. SELOZOK [Concomitant]
     Active Substance: METOPROLOL SUCCINATE
     Dosage: 2 DF, DAILY
     Dates: start: 2011
  3. NORVASC [Concomitant]
     Active Substance: AMLODIPINE BESYLATE
     Dosage: UNK
     Dates: start: 201112

REACTIONS (2)
  - Cardiac disorder [Unknown]
  - Blood pressure abnormal [Unknown]

NARRATIVE: CASE EVENT DATE: 20140718
